FAERS Safety Report 4564118-5 (Version None)
Quarter: 2005Q1

REPORT INFORMATION
  Report Type: 
  Country: None (occurrence: None)
  Receive Date: 20050126
  Receipt Date: 20050111
  Transmission Date: 20050727
  Serious: Yes (Hospitalization)
  Sender: FDA-Public Use
  Company Number: RENA-11259

PATIENT
  Age: 88 Year
  Sex: Male

DRUGS (12)
  1. RENAGEL [Suspect]
     Indication: HYPERPHOSPHATAEMIA
     Dosage: 0.8 G BID PO
     Route: 048
     Dates: end: 20041103
  2. OMEPRAZOLE [Concomitant]
  3. COLCHICINE ^HOUDE^ [Concomitant]
  4. ALLOPURINOL [Concomitant]
  5. CORDARONE [Concomitant]
  6. AMLOR [Concomitant]
  7. CARDENSIEL (BISOPROLOL HEMIFUMARATE) [Concomitant]
  8. PLAVIX [Concomitant]
  9. LASILIX [Concomitant]
  10. NITRODERM [Concomitant]
  11. RAVLANE [Concomitant]
  12. ALPHA UN (ALFACALCIDOL) [Concomitant]

REACTIONS (1)
  - IDIOPATHIC THROMBOCYTOPENIC PURPURA [None]
